FAERS Safety Report 5748021-0 (Version None)
Quarter: 2008Q2

REPORT INFORMATION
  Report Type: 
  Country: None (occurrence: None)
  Receive Date: 20080523
  Receipt Date: 20080516
  Transmission Date: 20081010
  Serious: Yes (Other)
  Sender: FDA-Public Use
  Company Number: CH-AMGEN-UK278092

PATIENT
  Age: 69 Year
  Sex: Female

DRUGS (11)
  1. ARANESP [Suspect]
     Indication: RENAL FAILURE CHRONIC
     Route: 058
     Dates: end: 20080502
  2. SINTROM [Concomitant]
     Route: 048
  3. ELTROXIN [Concomitant]
     Route: 048
  4. ACIMETHIN [Concomitant]
     Route: 048
  5. CORDARONE [Concomitant]
     Route: 048
  6. NORVASC [Concomitant]
     Route: 048
     Dates: start: 20080401
  7. CARVEDILOL [Concomitant]
     Route: 048
     Dates: start: 20080401
  8. HYGROTON [Concomitant]
     Route: 048
  9. PRAVASTATIN [Concomitant]
     Route: 048
     Dates: start: 20080401
  10. FOLIC ACID [Concomitant]
     Route: 048
     Dates: start: 20080401
  11. IRON [Concomitant]
     Route: 048
     Dates: start: 20080401

REACTIONS (7)
  - HYPERHIDROSIS [None]
  - HYPERSENSITIVITY [None]
  - INJECTION SITE ERYTHEMA [None]
  - INJECTION SITE IRRITATION [None]
  - INJECTION SITE SWELLING [None]
  - PRURITUS [None]
  - URTICARIA [None]
